FAERS Safety Report 17856354 (Version 2)
Quarter: 2020Q3

REPORT INFORMATION
  Report Type: Spontaneous
  Country: US (occurrence: US)
  Receive Date: 20200603
  Receipt Date: 20200824
  Transmission Date: 20201103
  Serious: Yes (Other)
  Sender: FDA-Public Use
  Company Number: US-PFIZER INC-2020216786

PATIENT
  Age: 58 Year
  Sex: Female

DRUGS (1)
  1. XELJANZ XR [Suspect]
     Active Substance: TOFACITINIB CITRATE
     Dosage: 11 MG
     Dates: start: 202005

REACTIONS (7)
  - Feeling abnormal [Unknown]
  - Feeling hot [Unknown]
  - Haemorrhage urinary tract [Unknown]
  - Nasopharyngitis [Unknown]
  - Chest pain [Unknown]
  - Heart rate increased [Unknown]
  - Skin irritation [Unknown]
